FAERS Safety Report 9672013 (Version 1)
Quarter: 2013Q4

REPORT INFORMATION
  Report Type: Spontaneous
  Country: US (occurrence: US)
  Receive Date: 20131106
  Receipt Date: 20131106
  Transmission Date: 20140711
  Serious: Yes (Other)
  Sender: FDA-Public Use
  Company Number: US-GLAXOSMITHKLINE-A1048506A

PATIENT
  Age: 75 Year
  Sex: Male

DRUGS (5)
  1. VOTRIENT [Suspect]
     Indication: RENAL CANCER
     Dosage: 800MG PER DAY
     Route: 048
  2. OXYCODONE + ACETAMINOPHEN [Concomitant]
  3. OXYCONTIN [Concomitant]
  4. PREDNISONE [Concomitant]
  5. STOOL SOFTENER [Concomitant]

REACTIONS (6)
  - Haemorrhage [Unknown]
  - Thrombosis [Unknown]
  - Oedema peripheral [Unknown]
  - Skin discolouration [Unknown]
  - Wound [Unknown]
  - Purulent discharge [Unknown]
